FAERS Safety Report 8255509-X (Version None)
Quarter: 2012Q2

REPORT INFORMATION
  Report Type: 
  Country: None (occurrence: None)
  Receive Date: 20120403
  Receipt Date: 20120329
  Transmission Date: 20120825
  Serious: Yes (Other)
  Sender: FDA-Public Use
  Company Number: NL-PFIZER INC-2012081210

PATIENT
  Age: 54 Year
  Sex: Female

DRUGS (4)
  1. PLAQUENIL [Concomitant]
     Dosage: 200 MG, 2X/DAY
     Dates: start: 20060928
  2. PRILOSEC [Concomitant]
     Dosage: 20 MG, 1X/DAY
     Dates: start: 20060928
  3. CELEBREX [Suspect]
     Indication: FIBROMYALGIA
     Dosage: 100 MG, 3X/DAY
     Dates: start: 20060928, end: 20070110
  4. EFFEXOR [Concomitant]
     Dosage: 75 MG, 1X/DAY
     Dates: start: 20061208

REACTIONS (1)
  - NERVOUS SYSTEM DISORDER [None]
